FAERS Safety Report 4282952-6 (Version None)
Quarter: 2004Q1

REPORT INFORMATION
  Report Type: 
  Country: None (occurrence: None)
  Receive Date: 20040130
  Receipt Date: 20040121
  Transmission Date: 20041129
  Serious: Yes (Other)
  Sender: FDA-Public Use
  Company Number: PHBS2004TR01116

PATIENT
  Age: 13 Year

DRUGS (2)
  1. CICLOSPORIN [Suspect]
     Indication: LIVER TRANSPLANT
     Dosage: CSA LEVEL AT 200-400 NG/ML
     Route: 065
  2. PREDNISONE [Concomitant]

REACTIONS (4)
  - BLOOD IMMUNOGLOBULIN E INCREASED [None]
  - DERMATITIS ATOPIC [None]
  - EOSINOPHILIA [None]
  - FOOD ALLERGY [None]
